FAERS Safety Report 25455121 (Version 1)
Quarter: 2025Q2

REPORT INFORMATION
  Report Type: Spontaneous
  Country: CA (occurrence: CA)
  Receive Date: 20250619
  Receipt Date: 20250619
  Transmission Date: 20250716
  Serious: Yes (Hospitalization)
  Sender: CHEPLAPHARM
  Company Number: CA-CHEPLA-2025007393

PATIENT
  Age: 89 Year
  Sex: Male

DRUGS (10)
  1. HYDROXYUREA [Suspect]
     Active Substance: HYDROXYUREA
  2. AMLODIPINE [Concomitant]
     Active Substance: AMLODIPINE BESYLATE
  3. BIMATOPROST [Concomitant]
     Active Substance: BIMATOPROST
  4. INSULIN ASPART [Concomitant]
     Active Substance: INSULIN ASPART
  5. INSULIN DEGLUDEC [Concomitant]
     Active Substance: INSULIN DEGLUDEC
     Route: 058
  6. KAYEXALATE [Concomitant]
     Active Substance: SODIUM POLYSTYRENE SULFONATE
  7. NITROGLYCERIN [Concomitant]
     Active Substance: NITROGLYCERIN
  8. ROSUVASTATIN [Concomitant]
     Active Substance: ROSUVASTATIN
  9. TERAZOSIN [Concomitant]
     Active Substance: TERAZOSIN HYDROCHLORIDE
  10. VITAMIN D [Concomitant]
     Active Substance: VITAMIN D NOS

REACTIONS (3)
  - Haemoglobin abnormal [Recovering/Resolving]
  - Pneumonia [Recovering/Resolving]
  - White blood cell count abnormal [Recovering/Resolving]
